FAERS Safety Report 4640559-2 (Version None)
Quarter: 2005Q2

REPORT INFORMATION
  Report Type: 
  Country: None (occurrence: None)
  Receive Date: 20050321
  Receipt Date: 20040426
  Transmission Date: 20051028
  Serious: Yes (Other)
  Sender: FDA-Public Use
  Company Number: 2004-04-1515

PATIENT
  Sex: Male

DRUGS (2)
  1. PEG-INTRON [Suspect]
     Dosage: 300 MCG VIAL
     Dates: end: 20021116
  2. REBETOL [Suspect]
     Dosage: ORAL
     Route: 048
     Dates: end: 20021116

REACTIONS (1)
  - ALCOHOLISM [None]
